FAERS Safety Report 21395082 (Version 1)
Quarter: 2022Q3

REPORT INFORMATION
  Report Type: Report from Study
  Country: US (occurrence: US)
  Receive Date: 20220930
  Receipt Date: 20220930
  Transmission Date: 20221027
  Serious: Yes (Other)
  Sender: FDA-Public Use
  Company Number: US-INSMED, INC.-2022-01970-US

PATIENT
  Sex: Male

DRUGS (1)
  1. ARIKAYCE [Suspect]
     Active Substance: AMIKACIN
     Indication: Mycobacterial infection
     Dosage: 590 MILLIGRAM, QD
     Route: 055
     Dates: start: 20220707, end: 20220831

REACTIONS (15)
  - Fall [Unknown]
  - Rib fracture [Unknown]
  - Dizziness [Unknown]
  - Sleep disorder [Unknown]
  - Sputum increased [Not Recovered/Not Resolved]
  - Decreased appetite [Unknown]
  - Balance disorder [Not Recovered/Not Resolved]
  - Productive cough [Unknown]
  - Dry mouth [Unknown]
  - Oral candidiasis [Not Recovered/Not Resolved]
  - Nausea [Not Recovered/Not Resolved]
  - Diarrhoea [Not Recovered/Not Resolved]
  - Wheezing [Unknown]
  - Asthenia [Unknown]
  - Malaise [Unknown]

NARRATIVE: CASE EVENT DATE: 20220101
